FAERS Safety Report 8155999-7 (Version None)
Quarter: 2012Q1

REPORT INFORMATION
  Report Type: 
  Country: None (occurrence: None)
  Receive Date: 20120222
  Receipt Date: 20120217
  Transmission Date: 20120608
  Serious: Yes (Death, Hospitalization, Other)
  Sender: FDA-Public Use
  Company Number: US-ASTELLAS-2012US001884

PATIENT

DRUGS (2)
  1. MULTIPLE MEDICATIONS [Concomitant]
     Indication: PRODUCT USED FOR UNKNOWN INDICATION
     Dosage: UNK
     Route: 065
  2. PROGRAF [Suspect]
     Indication: LUNG TRANSPLANT
     Dosage: 3.5 MG, UID/QD
     Route: 048

REACTIONS (7)
  - HEPATIC FAILURE [None]
  - RENAL FAILURE [None]
  - INFECTION [None]
  - ASTHENIA [None]
  - PYREXIA [None]
  - PLATELET COUNT DECREASED [None]
  - OFF LABEL USE [None]
